FAERS Safety Report 8087652-2 (Version None)
Quarter: 2012Q1

REPORT INFORMATION
  Report Type: 
  Country: None (occurrence: None)
  Receive Date: 20120128
  Receipt Date: 20110408
  Transmission Date: 20120608
  Serious: No
  Sender: FDA-Public Use
  Company Number: US-ABBOTT-11P-163-0717982-00

PATIENT
  Sex: Female
  Weight: 67.646 kg

DRUGS (2)
  1. CITALOPRAM [Concomitant]
     Indication: STRESS
  2. HUMIRA [Suspect]
     Indication: CROHN'S DISEASE
     Dates: start: 20090701

REACTIONS (9)
  - FATIGUE [None]
  - RHINORRHOEA [None]
  - PAIN IN EXTREMITY [None]
  - PRURITUS [None]
  - PAIN [None]
  - FEELING HOT [None]
  - SINUSITIS [None]
  - RASH [None]
  - PARAESTHESIA [None]
